FAERS Safety Report 8470520-1 (Version None)
Quarter: 2012Q2

REPORT INFORMATION
  Report Type: 
  Country: None (occurrence: None)
  Receive Date: 20120627
  Receipt Date: 20111202
  Transmission Date: 20120825
  Serious: No
  Sender: FDA-Public Use
  Company Number: US-MYLANLABS-2011S1024770

PATIENT
  Age: 62 Year
  Sex: Male
  Weight: 51.26 kg

DRUGS (3)
  1. XANAX [Concomitant]
  2. PERFOROMIST [Suspect]
     Indication: CHRONIC OBSTRUCTIVE PULMONARY DISEASE
     Route: 055
     Dates: start: 20111119, end: 20111130
  3. SPIRIVA [Concomitant]

REACTIONS (2)
  - MALAISE [None]
  - HAEMOPTYSIS [None]
